FAERS Safety Report 8005634-3 (Version None)
Quarter: 2011Q4

REPORT INFORMATION
  Report Type: 
  Country: None (occurrence: None)
  Receive Date: 20111223
  Receipt Date: 20111216
  Transmission Date: 20120403
  Serious: Yes (Death, Other)
  Sender: FDA-Public Use
  Company Number: DE-SANOFI-AVENTIS-2011SA068220

PATIENT
  Age: 72 Year
  Sex: Male

DRUGS (2)
  1. TAXOTERE [Suspect]
     Dosage: 150 MG TOTAL
     Route: 041
     Dates: start: 20111006, end: 20111006
  2. TAXOTERE [Suspect]
     Indication: PROSTATE CANCER
     Dosage: 150 MG TOTAL
     Route: 041
     Dates: start: 20111006, end: 20111006

REACTIONS (7)
  - PANCYTOPENIA [None]
  - STOMATITIS [None]
  - FEBRILE NEUTROPENIA [None]
  - PROTHROMBIN TIME PROLONGED [None]
  - DIARRHOEA HAEMORRHAGIC [None]
  - TOXICITY TO VARIOUS AGENTS [None]
  - UNEVALUABLE EVENT [None]
